FAERS Safety Report 7478133-5 (Version None)
Quarter: 2011Q2

REPORT INFORMATION
  Report Type: 
  Country: None (occurrence: None)
  Receive Date: 20110513
  Receipt Date: 20110503
  Transmission Date: 20111010
  Serious: Yes (Hospitalization)
  Sender: FDA-Public Use
  Company Number: US-BAYER-2010-009255

PATIENT
  Age: 66 Year
  Sex: Female
  Weight: 68.027 kg

DRUGS (17)
  1. NEXAVAR [Suspect]
     Indication: NON-SMALL CELL LUNG CANCER
     Dosage: 400 MG, BID
     Route: 048
     Dates: start: 20101203, end: 20101227
  2. ATIVAN [Concomitant]
     Indication: NAUSEA
     Dosage: 0.5 MG, PRN Q 6-8 HOURS
     Route: 048
     Dates: start: 20101223
  3. ERLOTINIB HYDROCHLORIDE [Suspect]
     Indication: NON-SMALL CELL LUNG CANCER
     Dosage: 150 MG, QD
     Route: 048
     Dates: start: 20101119, end: 20101227
  4. TOPROL-XL [Concomitant]
     Indication: HYPERTENSION
     Dosage: 50 MG, QD
     Route: 048
     Dates: start: 20090101
  5. LANTUS [Concomitant]
     Indication: DIABETES MELLITUS
     Dosage: UNK UNK, QD
     Route: 058
     Dates: start: 20100801
  6. RESTORIL [Concomitant]
     Indication: INSOMNIA
     Dosage: 15 MG, HS
     Route: 048
     Dates: start: 20101117
  7. ASPIRIN [Concomitant]
     Indication: ROUTINE HEALTH MAINTENANCE
     Dosage: 81 MG, QD
     Route: 048
     Dates: start: 20080101
  8. FISH OIL [Concomitant]
     Indication: SUPPLEMENTATION THERAPY
     Dosage: 1 TAB QD
     Route: 048
     Dates: start: 20080101
  9. ZITHROMAX [Concomitant]
     Indication: DYSPNOEA
  10. NEXAVAR [Suspect]
  11. DITROPAN XL [Concomitant]
     Indication: HYPERTONIC BLADDER
     Dosage: 5 MG, QD
     Route: 048
     Dates: start: 20100801
  12. IMODIUM [Concomitant]
     Indication: DIARRHOEA
     Dosage: OTC (OVER THE COUNTER)
     Route: 048
     Dates: start: 20101123
  13. ZITHROMAX [Concomitant]
     Indication: COUGH
     Dosage: 250 MG, AS DIRECTED
     Route: 048
     Dates: start: 20101223
  14. PREDNISONE [Concomitant]
     Indication: DYSPNOEA
     Dosage: 20 MG, AS DIRECTED
     Route: 048
     Dates: start: 20101223
  15. PREDNISONE [Concomitant]
     Indication: COUGH
  16. METFORMIN HCL [Concomitant]
     Indication: DIABETES MELLITUS
     Dosage: 2.5 MG, BID
     Route: 048
     Dates: start: 20060101
  17. MAGNESIUM OXIDE [Concomitant]
     Indication: BLOOD MAGNESIUM DECREASED
     Dosage: 400 MG, BID OVER THE COUNTER
     Route: 048
     Dates: start: 20101210

REACTIONS (1)
  - CEREBROVASCULAR ACCIDENT [None]
